FAERS Safety Report 18768546 (Version 1)
Quarter: 2021Q1

REPORT INFORMATION
  Report Type: Spontaneous
  Country: US (occurrence: US)
  Receive Date: 20210121
  Receipt Date: 20210121
  Transmission Date: 20210419
  Serious: Yes (Other)
  Sender: FDA-Public Use
  Company Number: None

PATIENT
  Age: 34 Year
  Sex: Female
  Weight: 55.8 kg

DRUGS (3)
  1. PRIVIGEN [Suspect]
     Active Substance: HUMAN IMMUNOGLOBULIN G
     Indication: SYSTEMIC SCLERODERMA
     Dosage: ?          OTHER FREQUENCY:X2 TWICE A MONTH;?
     Route: 042
     Dates: start: 20200501
  2. PRIVIGEN [Suspect]
     Active Substance: HUMAN IMMUNOGLOBULIN G
     Indication: SYSTEMIC SCLERODERMA
     Dosage: ?          OTHER FREQUENCY:X2 EVERY 2 WEEKS;?
     Route: 042
     Dates: start: 20200501
  3. BENADRYL [Concomitant]
     Active Substance: DIPHENHYDRAMINE HYDROCHLORIDE

REACTIONS (6)
  - Blister [None]
  - Swelling face [None]
  - Swollen tongue [None]
  - Dyspnoea [None]
  - Rash maculo-papular [None]
  - Infusion related reaction [None]

NARRATIVE: CASE EVENT DATE: 20210119
